FAERS Safety Report 18462515 (Version 1)
Quarter: 2020Q4

REPORT INFORMATION
  Report Type: Spontaneous
  Country: US (occurrence: US)
  Receive Date: 20201103
  Receipt Date: 20201103
  Transmission Date: 20210114
  Serious: Yes (Hospitalization)
  Sender: FDA-Public Use
  Company Number: None

PATIENT
  Age: 74 Year
  Sex: Female

DRUGS (18)
  1. PREDNISONE. [Concomitant]
     Active Substance: PREDNISONE
  2. VOLTAREN [Concomitant]
     Active Substance: DICLOFENAC SODIUM
  3. MELOXICAM. [Concomitant]
     Active Substance: MELOXICAM
  4. ASPIRIN LOW DOSE [Concomitant]
     Active Substance: ASPIRIN
  5. ORENCIA [Suspect]
     Active Substance: ABATACEPT
     Indication: PRODUCT USED FOR UNKNOWN INDICATION
     Route: 058
     Dates: start: 20171221
  6. OMEPRAZOLE. [Concomitant]
     Active Substance: OMEPRAZOLE
  7. AMLODIPINE [Concomitant]
     Active Substance: AMLODIPINE BESYLATE
  8. SIMVASTATIN. [Concomitant]
     Active Substance: SIMVASTATIN
  9. TRAZODONE [Concomitant]
     Active Substance: TRAZODONE HYDROCHLORIDE
  10. METHOTREXATE. [Suspect]
     Active Substance: METHOTREXATE
     Dates: start: 20190212
  11. OLMAS/AMLOD/HCTZ [Concomitant]
  12. ANUSOL HC [Concomitant]
     Active Substance: HYDROCORTISONE
  13. BASAGLAR [Concomitant]
     Active Substance: INSULIN GLARGINE
  14. METFORMIN [Concomitant]
     Active Substance: METFORMIN HYDROCHLORIDE
  15. SPIRONOLACTONE. [Concomitant]
     Active Substance: SPIRONOLACTONE
  16. VALTREX [Concomitant]
     Active Substance: VALACYCLOVIR HYDROCHLORIDE
  17. CALTRATE [Concomitant]
     Active Substance: CALCIUM CARBONATE
  18. CHLORTHALIDONE. [Concomitant]
     Active Substance: CHLORTHALIDONE

REACTIONS (2)
  - Breast cancer [None]
  - Therapy interrupted [None]

NARRATIVE: CASE EVENT DATE: 20201030
